FAERS Safety Report 16543779 (Version 2)
Quarter: 2019Q3

REPORT INFORMATION
  Report Type: Report from Study
  Country: US (occurrence: US)
  Receive Date: 20190709
  Receipt Date: 20190726
  Transmission Date: 20191004
  Serious: No
  Sender: FDA-Public Use
  Company Number: US-SUNOVION-2019SUN002779

PATIENT
  Age: 52 Year
  Sex: Male
  Weight: 74.83 kg

DRUGS (4)
  1. ADVAIR HFA [Concomitant]
     Active Substance: FLUTICASONE PROPIONATE\SALMETEROL XINAFOATE
     Indication: ASTHMA
     Dosage: 115-21 MCG/ACT 2 PUFFS INHALATION TWICE A DAY
     Route: 055
     Dates: start: 20190521
  2. LONHALA MAGNAIR [Suspect]
     Active Substance: GLYCOPYRROLATE
     Indication: ASTHMA
     Dosage: 25 MCG INHALE TWICE DAILY
     Route: 055
  3. PROAIR HFA [Concomitant]
     Active Substance: ALBUTEROL SULFATE
     Indication: ASTHMA
     Dosage: 108 (90 BASE) MCG/ACT 1 PUFFS AS NEEDED EVERY 4 HOURS
     Route: 055
     Dates: start: 20150520
  4. SYMBICORT [Concomitant]
     Active Substance: BUDESONIDE\FORMOTEROL FUMARATE DIHYDRATE
     Indication: ASTHMA
     Dosage: 160/4.5 2 PUFFS BY INHALATION
     Route: 055
     Dates: start: 20170110, end: 2019

REACTIONS (3)
  - Headache [Recovering/Resolving]
  - Dysuria [Recovering/Resolving]
  - Off label use [Unknown]

NARRATIVE: CASE EVENT DATE: 20190628
